FAERS Safety Report 9369276 (Version 1)
Quarter: 2013Q2

REPORT INFORMATION
  Report Type: Spontaneous
  Country: US (occurrence: None)
  Receive Date: 20130625
  Receipt Date: 20130625
  Transmission Date: 20140414
  Serious: Yes (Life-Threatening, Hospitalization, Other)
  Sender: FDA-Public Use
  Company Number: None

PATIENT
  Age: 61 Year
  Sex: 0

DRUGS (1)
  1. FENTANYL PATCH [Suspect]

REACTIONS (4)
  - Malaise [None]
  - Dizziness [None]
  - Nausea [None]
  - Abdominal discomfort [None]
